FAERS Safety Report 15183517 (Version 1)
Quarter: 2018Q3

REPORT INFORMATION
  Report Type: Spontaneous
  Country: HR (occurrence: HR)
  Receive Date: 20180723
  Receipt Date: 20180723
  Transmission Date: 20181010
  Serious: Yes (Other)
  Sender: FDA-Public Use
  Company Number: HR-ELI_LILLY_AND_COMPANY-HR201807006801

PATIENT
  Age: 68 Year
  Sex: Female

DRUGS (1)
  1. BARICITINIB [Suspect]
     Active Substance: BARICITINIB
     Indication: PRODUCT USED FOR UNKNOWN INDICATION
     Dosage: 1 DF, UNKNOWN
     Route: 065
     Dates: start: 201801, end: 20180528

REACTIONS (5)
  - Gamma-glutamyltransferase increased [Unknown]
  - Aspartate aminotransferase increased [Unknown]
  - Alanine aminotransferase increased [Unknown]
  - Blood lactate dehydrogenase [Unknown]
  - Blood alkaline phosphatase increased [Unknown]
